FAERS Safety Report 15964952 (Version 1)
Quarter: 2019Q1

REPORT INFORMATION
  Report Type: Report from Study
  Country: IT (occurrence: IT)
  Receive Date: 20190215
  Receipt Date: 20190215
  Transmission Date: 20190418
  Serious: Yes (Other)
  Sender: FDA-Public Use
  Company Number: IT-ACCORD-107142

PATIENT
  Age: 44 Year
  Sex: Male

DRUGS (2)
  1. CLOPIDOGREL [Suspect]
     Active Substance: CLOPIDOGREL BISULFATE
     Indication: THROMBOSIS PROPHYLAXIS
     Route: 048
  2. ACETYLSALICYLIC ACID [Interacting]
     Active Substance: ASPIRIN
     Indication: THROMBOSIS PROPHYLAXIS
     Route: 048

REACTIONS (2)
  - Drug interaction [Unknown]
  - Rectal haemorrhage [Unknown]

NARRATIVE: CASE EVENT DATE: 20180619
